FAERS Safety Report 5051660-6 (Version None)
Quarter: 2006Q3

REPORT INFORMATION
  Report Type: 
  Country: None (occurrence: None)
  Receive Date: 20060714
  Receipt Date: 20060703
  Transmission Date: 20061208
  Serious: Yes (Hospitalization, Other)
  Sender: FDA-Public Use
  Company Number: US-KINGPHARMUSA00001-K200600874

PATIENT
  Age: 68 Year
  Sex: Male
  Weight: 88 kg

DRUGS (9)
  1. ALTACE [Suspect]
     Indication: HYPERTENSION
     Dosage: 5 MG, QD
     Route: 048
     Dates: start: 20020901, end: 20060612
  2. ALLOPURINOL [Concomitant]
     Indication: GOUT
     Dosage: 300 MG, QD
     Route: 048
     Dates: start: 19960101
  3. PLAVIX [Concomitant]
     Dosage: 75 MG, QD
     Route: 048
     Dates: start: 20020101
  4. ASPIRIN [Concomitant]
     Dosage: 81 MG, QD
     Route: 048
     Dates: start: 20020101
  5. AMBIEN [Concomitant]
     Indication: INSOMNIA
     Dosage: 15 MG, QHS
     Route: 048
  6. ACTOS [Concomitant]
     Indication: DIABETES MELLITUS
     Dosage: 30 MG, QD
     Route: 048
  7. EFFEXOR [Concomitant]
     Dosage: ^LOW DOSE^, QD
     Route: 048
     Dates: start: 20020101
  8. VYTORIN [Concomitant]
     Indication: BLOOD CHOLESTEROL INCREASED
     Dosage: UNK, QD
     Route: 048
     Dates: start: 20050101
  9. PRILOSEC [Concomitant]
     Indication: GASTROOESOPHAGEAL REFLUX DISEASE
     Dosage: UNK, QD
     Route: 048

REACTIONS (4)
  - BLOOD GLUCOSE ABNORMAL [None]
  - BLOOD PRESSURE SYSTOLIC INCREASED [None]
  - DRUG INEFFECTIVE [None]
  - SWOLLEN TONGUE [None]
